FAERS Safety Report 8335852-6 (Version None)
Quarter: 2012Q2

REPORT INFORMATION
  Report Type: 
  Country: None (occurrence: None)
  Receive Date: 20120504
  Receipt Date: 20120501
  Transmission Date: 20120825
  Serious: Yes (Other)
  Sender: FDA-Public Use
  Company Number: US-PFIZER INC-2012107341

PATIENT
  Sex: Male
  Weight: 99.773 kg

DRUGS (2)
  1. PREVACID [Concomitant]
     Dosage: UNK
  2. VIAGRA [Suspect]
     Indication: ERECTILE DYSFUNCTION
     Dosage: 50 MG, AS NEEDED
     Route: 048

REACTIONS (4)
  - FLUSHING [None]
  - NASOPHARYNGEAL REFLUX [None]
  - DEPRESSION [None]
  - NASAL CONGESTION [None]
